FAERS Safety Report 5187290-5 (Version None)
Quarter: 2006Q4

REPORT INFORMATION
  Report Type: 
  Country: None (occurrence: None)
  Receive Date: 20061220
  Receipt Date: 20060427
  Transmission Date: 20070319
  Serious: No
  Sender: FDA-Public Use
  Company Number: US-AMGEN-US177970

PATIENT
  Sex: Male
  Weight: 123.5 kg

DRUGS (13)
  1. ENBREL [Suspect]
     Indication: PSORIASIS
     Route: 058
     Dates: start: 20060323, end: 20060413
  2. AVALIDE [Concomitant]
     Route: 065
  3. GEMFIBROZIL [Concomitant]
     Route: 065
  4. RANITIDINE [Concomitant]
     Route: 065
  5. LIPITOR [Concomitant]
     Route: 065
  6. CARDIZEM [Concomitant]
     Route: 065
  7. FENOFIBRATE [Concomitant]
     Route: 065
  8. PAXIL [Concomitant]
     Route: 065
  9. ASPIRIN [Concomitant]
     Route: 065
  10. VITAMIN B COMPLEX WITH C [Concomitant]
     Route: 065
  11. VITAMIN CAP [Concomitant]
     Route: 065
  12. FISH OIL [Concomitant]
     Route: 065
  13. ANDROGEL [Concomitant]
     Route: 065

REACTIONS (1)
  - DEMYELINATION [None]
